FAERS Safety Report 12219041 (Version 1)
Quarter: 2016Q1

REPORT INFORMATION
  Report Type: Spontaneous
  Country: US (occurrence: US)
  Receive Date: 20160329
  Receipt Date: 20160329
  Transmission Date: 20160526
  Serious: Yes (Hospitalization)
  Sender: FDA-Public Use
  Company Number: GXBR2015US001366

PATIENT
  Sex: Male

DRUGS (3)
  1. CLORAZEPATE [Suspect]
     Active Substance: CLORAZEPATE DIPOTASSIUM
     Indication: PRODUCT USED FOR UNKNOWN INDICATION
     Dosage: UNK MG, UNK
     Route: 065
  2. PAROXETINE HCL TABLETS [Suspect]
     Active Substance: PAROXETINE HYDROCHLORIDE
     Indication: OBSESSIVE-COMPULSIVE DISORDER
     Dosage: 40-60 MG, QD
     Route: 048
     Dates: end: 201410
  3. LORAZEPAM ACTAVIS 0.5MG [Suspect]
     Active Substance: LORAZEPAM
     Indication: PRODUCT USED FOR UNKNOWN INDICATION
     Dosage: UNK MG, UNK
     Route: 065

REACTIONS (6)
  - Aggression [Recovered/Resolved]
  - Libido decreased [Recovered/Resolved]
  - Anger [Recovered/Resolved]
  - Belligerence [Recovered/Resolved]
  - Drug withdrawal syndrome [Recovered/Resolved]
  - Impulsive behaviour [Recovered/Resolved]
